FAERS Safety Report 22111502 (Version 1)
Quarter: 2023Q1

REPORT INFORMATION
  Report Type: Spontaneous
  Country: None (occurrence: GB)
  Receive Date: 20230318
  Receipt Date: 20230318
  Transmission Date: 20230418
  Serious: Yes (Hospitalization, Other)
  Sender: FDA-Public Use
  Company Number: GB-B.Braun Medical Inc.-2139227

PATIENT
  Age: 20 Year
  Sex: Male

DRUGS (36)
  1. LIDOCAINE HYDROCHLORIDE [Suspect]
     Active Substance: LIDOCAINE HYDROCHLORIDE
     Indication: Adverse event
     Route: 065
  2. UNSPECIFIED INGREDIENT [Suspect]
     Active Substance: UNSPECIFIED INGREDIENT
  3. DOCUSATE SODIUM [Suspect]
     Active Substance: DOCUSATE SODIUM
  4. INSTILLAGEL [Suspect]
     Active Substance: CHLORHEXIDINE GLUCONATE\LIDOCAINE HYDROCHLORIDE
  5. ORAMORPH SR SUSTAINED RELEASE [Suspect]
     Active Substance: MORPHINE SULFATE
  6. TOPOTECAN HYDROCHLORIDE [Suspect]
     Active Substance: TOPOTECAN HYDROCHLORIDE
  7. UNSPECIFIED INGREDIENT [Suspect]
     Active Substance: UNSPECIFIED INGREDIENT
  8. ZYRTEC [Suspect]
     Active Substance: CETIRIZINE HYDROCHLORIDE
  9. CETIRIZINE HYDROCHLORIDE [Suspect]
     Active Substance: CETIRIZINE HYDROCHLORIDE
  10. DOXORUBICIN HYDROCHLORIDE [Suspect]
     Active Substance: DOXORUBICIN HYDROCHLORIDE
  11. VENETOCLAX [Suspect]
     Active Substance: VENETOCLAX
  12. TOPOTECAN HYDROCHLORIDE [Suspect]
     Active Substance: TOPOTECAN HYDROCHLORIDE
  13. MESNA [Suspect]
     Active Substance: MESNA
  14. MORPHINE SULFATE [Suspect]
     Active Substance: MORPHINE SULFATE
  15. DOCUSATE SODIUM [Suspect]
     Active Substance: DOCUSATE SODIUM
  16. IFOSFAMIDE [Suspect]
     Active Substance: IFOSFAMIDE
  17. CYCLOPHOSPHAMIDE [Suspect]
     Active Substance: CYCLOPHOSPHAMIDE
  18. COTRIMOXAZOLE [Concomitant]
     Active Substance: SULFAMETHOXAZOLE\TRIMETHOPRIM
  19. PIPERACILLIN SODIUM\TAZOBACTAM SODIUM [Concomitant]
     Active Substance: PIPERACILLIN SODIUM\TAZOBACTAM SODIUM
  20. PERU BALSAM [Concomitant]
  21. AMOXICILLIN AND CLAVULANATE POTASSIUM [Concomitant]
     Active Substance: AMOXICILLIN\CLAVULANATE POTASSIUM
  22. LEVOTHYROXINE [Concomitant]
     Active Substance: LEVOTHYROXINE
  23. LIPEGFILGRASTIM [Concomitant]
     Active Substance: LIPEGFILGRASTIM
  24. ONDANSETRON [Concomitant]
     Active Substance: ONDANSETRON
  25. ACETAMINOPHEN [Concomitant]
     Active Substance: ACETAMINOPHEN
  26. POLYETHYLENE GLYCOLS [Concomitant]
     Active Substance: POLYETHYLENE GLYCOLS
  27. KETAMINE HYDROCHLORIDE [Concomitant]
     Active Substance: KETAMINE HYDROCHLORIDE
  28. SULFAMETHOXAZOLE [Concomitant]
     Active Substance: SULFAMETHOXAZOLE
  29. ZINC OXIDE [Concomitant]
     Active Substance: ZINC OXIDE
  30. FENTANYL [Concomitant]
     Active Substance: FENTANYL
  31. MEROPENEM [Concomitant]
     Active Substance: MEROPENEM
  32. LIDOCAINE HYDROCHLORIDE [Concomitant]
     Active Substance: LIDOCAINE HYDROCHLORIDE
  33. TRIMETHOPRIM [Concomitant]
     Active Substance: TRIMETHOPRIM
  34. ZINC SULFATE [Concomitant]
     Active Substance: ZINC SULFATE
  35. CLONIDINE [Concomitant]
     Active Substance: CLONIDINE
  36. TEICOPLANIN [Concomitant]
     Active Substance: TEICOPLANIN

REACTIONS (11)
  - Vomiting [Unknown]
  - Back pain [Recovered/Resolved]
  - Febrile neutropenia [Recovered/Resolved]
  - Proctalgia [Unknown]
  - Anal inflammation [Unknown]
  - Chills [Unknown]
  - Crohn^s disease [Unknown]
  - Haemorrhoids [Unknown]
  - Neutropenia [Unknown]
  - Pyrexia [Unknown]
  - Body temperature increased [Unknown]
